FAERS Safety Report 12503321 (Version 1)
Quarter: 2016Q2

REPORT INFORMATION
  Report Type: Spontaneous
  Country: US (occurrence: None)
  Receive Date: 20160627
  Receipt Date: 20160627
  Transmission Date: 20160815
  Serious: No
  Sender: FDA-Public Use
  Company Number: None

PATIENT
  Age: 68 Year
  Sex: Male
  Weight: 56.7 kg

DRUGS (5)
  1. IMIQUIMOD. [Suspect]
     Active Substance: IMIQUIMOD
     Dates: end: 20160608
  2. JANUVIA [Concomitant]
     Active Substance: SITAGLIPTIN PHOSPHATE
  3. METFORMIN [Concomitant]
     Active Substance: METFORMIN HYDROCHLORIDE
  4. LANTUS [Concomitant]
     Active Substance: INSULIN GLARGINE
  5. NOVOLOG [Concomitant]
     Active Substance: INSULIN ASPART

REACTIONS (3)
  - Dizziness [None]
  - Blood glucose decreased [None]
  - Syncope [None]

NARRATIVE: CASE EVENT DATE: 20160619
